FAERS Safety Report 6285875-6 (Version None)
Quarter: 2009Q3

REPORT INFORMATION
  Report Type: 
  Country: None (occurrence: None)
  Receive Date: 20090728
  Receipt Date: 20090717
  Transmission Date: 20100115
  Serious: Yes (Hospitalization)
  Sender: FDA-Public Use
  Company Number: US-JNJFOC-20090706575

PATIENT
  Sex: Female
  Weight: 122.7 kg

DRUGS (5)
  1. REMICADE [Suspect]
     Route: 042
  2. REMICADE [Suspect]
     Indication: RHEUMATOID ARTHRITIS
     Route: 042
  3. CLARITIN [Concomitant]
     Route: 048
  4. TRAMADOL [Concomitant]
     Route: 048
  5. LEFLUNOMIDE [Concomitant]
     Route: 048

REACTIONS (1)
  - GASTRIC BYPASS [None]
